FAERS Safety Report 14665196 (Version 1)
Quarter: 2018Q1

REPORT INFORMATION
  Report Type: Spontaneous
  Country: BR (occurrence: BR)
  Receive Date: 20180321
  Receipt Date: 20180321
  Transmission Date: 20180509
  Serious: Yes (Death, Other)
  Sender: FDA-Public Use
  Company Number: BR-BAYER-2018-052635

PATIENT
  Age: 64 Year
  Sex: Male

DRUGS (1)
  1. XOFIGO [Suspect]
     Active Substance: RADIUM RA-223 DICHLORIDE
     Dosage: UNK
     Dates: start: 20180223

REACTIONS (4)
  - Aspartate aminotransferase increased [None]
  - Multiple organ dysfunction syndrome [Fatal]
  - General physical health deterioration [None]
  - Alanine aminotransferase increased [None]

NARRATIVE: CASE EVENT DATE: 20180304
